FAERS Safety Report 11062051 (Version 3)
Quarter: 2015Q2

REPORT INFORMATION
  Report Type: Spontaneous
  Country: US (occurrence: US)
  Receive Date: 20150424
  Receipt Date: 20150519
  Transmission Date: 20150821
  Serious: No
  Sender: FDA-Public Use
  Company Number: US-UNITED THERAPEUTICS-UNT-2015-002919

PATIENT
  Age: 71 Year
  Sex: Female
  Weight: 89.8 kg

DRUGS (4)
  1. TYVASO [Suspect]
     Active Substance: TREPROSTINIL
     Dosage: 18-72 ?G, QID
  2. ADCIRCA [Concomitant]
     Active Substance: TADALAFIL
     Indication: PRODUCT USED FOR UNKNOWN INDICATION
  3. TYVASO [Suspect]
     Active Substance: TREPROSTINIL
     Dosage: 18-72 ?G, QID
  4. TYVASO [Suspect]
     Active Substance: TREPROSTINIL
     Indication: PULMONARY ARTERIAL HYPERTENSION
     Dosage: 18-72 ?G, QID
     Dates: start: 20150303

REACTIONS (10)
  - Heart rate increased [Unknown]
  - Nausea [Unknown]
  - Headache [Unknown]
  - Chest pain [Unknown]
  - Dizziness [Unknown]
  - Oxygen saturation decreased [Unknown]
  - Epistaxis [Unknown]
  - Productive cough [Unknown]
  - Nervousness [Unknown]
  - Malaise [Unknown]

NARRATIVE: CASE EVENT DATE: 201503
